FAERS Safety Report 7233191-8 (Version None)
Quarter: 2011Q1

REPORT INFORMATION
  Report Type: 
  Country: None (occurrence: None)
  Receive Date: 20110119
  Receipt Date: 20110114
  Transmission Date: 20110831
  Serious: Yes (Death, Hospitalization)
  Sender: FDA-Public Use
  Company Number: A0888645A

PATIENT
  Age: 63 Year
  Sex: Female

DRUGS (2)
  1. CONCURRENT MEDICATIONS [Concomitant]
  2. ADVAIR [Suspect]
     Indication: CHRONIC OBSTRUCTIVE PULMONARY DISEASE
     Dosage: 1PUFF TWICE PER DAY
     Route: 055
     Dates: start: 20080101, end: 20101001

REACTIONS (3)
  - DEATH [None]
  - OEDEMA [None]
  - HYPOTENSION [None]
